FAERS Safety Report 9851414 (Version 1)
Quarter: 2014Q1

REPORT INFORMATION
  Report Type: Spontaneous
  Country: TR (occurrence: TR)
  Receive Date: 20140129
  Receipt Date: 20140129
  Transmission Date: 20141002
  Serious: Yes (Other)
  Sender: FDA-Public Use
  Company Number: TR-009507513-1401TUR011602

PATIENT
  Age: 3 Year
  Sex: Female
  Weight: 15 kg

DRUGS (8)
  1. ROCURONIUM BROMIDE [Suspect]
     Indication: GENERAL ANAESTHESIA
     Dosage: 12 MG, UNK
  2. PROPOFOL [Suspect]
     Indication: GENERAL ANAESTHESIA
     Dosage: 30 MG, UNK
  3. FENTANYL [Suspect]
     Indication: GENERAL ANAESTHESIA
     Dosage: 15 MICROGRAM, UNK
  4. SEVOFLURANE [Suspect]
     Indication: GENERAL ANAESTHESIA
     Dosage: 2% MINIMUM ALVEOLAR CONCENTRATION VALUE
  5. NITROUS OXIDE [Suspect]
     Indication: GENERAL ANAESTHESIA
  6. CEFTRIAXONE SODIUM [Concomitant]
     Route: 042
  7. MANNITOL [Concomitant]
     Route: 042
  8. DEXAMETHASONE [Concomitant]
     Route: 042

REACTIONS (2)
  - Mumps [Recovering/Resolving]
  - VIIth nerve paralysis [Recovered/Resolved]
